FAERS Safety Report 10068759 (Version 2)
Quarter: 2014Q2

REPORT INFORMATION
  Report Type: Report from Study
  Country: US (occurrence: US)
  Receive Date: 20140409
  Receipt Date: 20140529
  Transmission Date: 20141212
  Serious: Yes (Other)
  Sender: FDA-Public Use
  Company Number: PHEH2014US006722

PATIENT
  Age: 53 Year
  Sex: Female
  Weight: 67.1 kg

DRUGS (18)
  1. ZOMETA [Suspect]
     Indication: METASTASES TO BONE
     Dosage: UNK UKN, EVERY MONTH
     Dates: start: 201309
  2. XELODA [Concomitant]
     Indication: BREAST CANCER
     Dosage: UNK UKN, UNK
  3. XELODA [Concomitant]
     Dosage: 2000 MG, BID
  4. FLONASE [Concomitant]
     Dosage: UNK UKN, UNK
  5. LEVOCETIRIZIN [Concomitant]
     Dosage: UNK UKN, UNK
  6. ADVIL//IBUPROFEN [Concomitant]
     Dosage: UNK UKN, UNK
  7. OXYCONTIN [Concomitant]
     Dosage: 1 DF, Q3H
     Route: 048
  8. OXYCODONE [Concomitant]
     Indication: PAIN
     Dosage: 1 DF, Q3-4H
     Route: 048
  9. CYCLOBENZAPRINE [Concomitant]
     Dosage: 1 DF, QD
     Route: 048
  10. COLACE [Concomitant]
     Dosage: 1 DF, BID
     Route: 048
  11. CALCIUM + VIT D [Concomitant]
     Dosage: 1 DF, QD
     Route: 048
  12. SINGULAIR [Concomitant]
     Dosage: UNK UKN, UNK
  13. LORAZEPAM [Concomitant]
     Dosage: 1 DF, AS NEEDED
     Route: 048
  14. COUMADIN//WARFARIN SODIUM [Concomitant]
     Dosage: 3 DF, QD
  15. ZOFRAN [Concomitant]
     Dosage: UNK UKN, UNK
  16. ALEVE [Concomitant]
     Dosage: 2 DF, BID
     Route: 048
  17. SENOKOT                                 /USA/ [Concomitant]
     Dosage: 4 DF, QD
     Route: 048
  18. ZYRTEC [Concomitant]
     Dosage: 1 DF, QHS
     Route: 048

REACTIONS (6)
  - Palmar-plantar erythrodysaesthesia syndrome [Recovering/Resolving]
  - Blister [Not Recovered/Not Resolved]
  - Pain in extremity [Not Recovered/Not Resolved]
  - Erythema [Not Recovered/Not Resolved]
  - Fatigue [Not Recovered/Not Resolved]
  - Constipation [Not Recovered/Not Resolved]
